FAERS Safety Report 4951867-X (Version None)
Quarter: 2006Q1

REPORT INFORMATION
  Report Type: 
  Country: None (occurrence: None)
  Receive Date: 20060323
  Receipt Date: 20051208
  Transmission Date: 20060701
  Serious: Yes (Hospitalization)
  Sender: FDA-Public Use
  Company Number: US-MERCK-0512USA01477

PATIENT
  Age: 76 Year
  Sex: Male
  Weight: 95 kg

DRUGS (6)
  1. VIOXX [Suspect]
     Indication: ARTHRALGIA
     Route: 048
     Dates: start: 20001101, end: 20040801
  2. VIOXX [Suspect]
     Route: 048
     Dates: start: 20001101, end: 20040801
  3. LOPRESSOR [Concomitant]
     Route: 065
  4. ASPIRIN [Concomitant]
     Route: 065
  5. ZANTAC [Concomitant]
     Route: 065
  6. LOTREL [Concomitant]
     Route: 065

REACTIONS (5)
  - ARTERIAL RUPTURE [None]
  - MYOCARDIAL INFARCTION [None]
  - OBSTRUCTIVE AIRWAYS DISORDER [None]
  - RENAL ARTERY STENOSIS [None]
  - VENTRICULAR TACHYCARDIA [None]
